FAERS Safety Report 9541605 (Version 1)
Quarter: 2013Q3

REPORT INFORMATION
  Report Type: Spontaneous
  Country: FR (occurrence: FR)
  Receive Date: 20130923
  Receipt Date: 20130923
  Transmission Date: 20140515
  Serious: Yes (Hospitalization)
  Sender: FDA-Public Use
  Company Number: FR-JNJFOC-20130909169

PATIENT
  Age: 83 Year
  Sex: Male

DRUGS (7)
  1. RISPERDAL [Suspect]
     Indication: PRODUCT USED FOR UNKNOWN INDICATION
     Dosage: 0-0-0-1
     Route: 048
     Dates: start: 20080411, end: 20080825
  2. NOCTAMIDE [Suspect]
     Indication: PRODUCT USED FOR UNKNOWN INDICATION
     Dosage: 0-0-0-1
     Route: 048
     Dates: start: 20070706, end: 20080819
  3. MYSOLINE [Suspect]
     Indication: PRODUCT USED FOR UNKNOWN INDICATION
     Dosage: 0-0-0-1/4
     Route: 048
     Dates: start: 20080618, end: 20080819
  4. DRIPTANE [Suspect]
     Indication: PRODUCT USED FOR UNKNOWN INDICATION
     Dosage: 1/2-0-1/2
     Route: 048
     Dates: start: 20060505, end: 20080525
  5. ZOLOFT [Concomitant]
     Route: 065
     Dates: start: 20080612
  6. ARICEPT [Concomitant]
     Route: 065
     Dates: start: 2004
  7. KARDEGIC [Concomitant]
     Route: 065

REACTIONS (3)
  - Fall [Recovered/Resolved]
  - Head injury [Unknown]
  - Rhabdomyolysis [Unknown]
